FAERS Safety Report 5578700-X (Version None)
Quarter: 2008Q1

REPORT INFORMATION
  Report Type: 
  Country: None (occurrence: None)
  Receive Date: 20080102
  Receipt Date: 20071221
  Transmission Date: 20080703
  Serious: Yes (Other)
  Sender: FDA-Public Use
  Company Number: PHEH2007US16050

PATIENT
  Age: 65 Year
  Sex: Female
  Weight: 49.886 kg

DRUGS (7)
  1. TEGRETOL [Suspect]
     Dosage: 200 MG, UNK
     Dates: start: 20070815, end: 20070927
  2. LAMICTAL [Suspect]
     Dosage: 150 MG, UNK
     Dates: start: 20070718, end: 20070828
  3. CIPROFLOXACIN [Suspect]
     Dosage: 500 MG, UNK
     Dates: start: 20070810, end: 20070815
  4. ORPHENADRINE CITRATE [Concomitant]
  5. ALPRAZOLAM [Concomitant]
  6. THIOTHIXENE [Concomitant]
  7. ESTROGENS CONJUGATED [Concomitant]

REACTIONS (5)
  - HEPATIC ENZYME INCREASED [None]
  - PYREXIA [None]
  - RASH [None]
  - SKIN LESION [None]
  - SWELLING FACE [None]
